FAERS Safety Report 20982295 (Version 3)
Quarter: 2023Q1

REPORT INFORMATION
  Report Type: Spontaneous
  Country: US (occurrence: US)
  Receive Date: 20220620
  Receipt Date: 20230113
  Transmission Date: 20230417
  Serious: No
  Sender: FDA-Public Use
  Company Number: US-NOVOPROD-924886

PATIENT

DRUGS (3)
  1. WEGOVY [Suspect]
     Active Substance: SEMAGLUTIDE
     Dosage: 1.7 MG
     Route: 058
  2. WEGOVY [Suspect]
     Active Substance: SEMAGLUTIDE
     Indication: Product used for unknown indication
     Dosage: 0.5MG
     Route: 058
     Dates: start: 202201
  3. WEGOVY [Suspect]
     Active Substance: SEMAGLUTIDE
     Indication: Product used for unknown indication
     Dosage: UNK
     Route: 058

REACTIONS (10)
  - Somnolence [Recovered/Resolved]
  - Crying [Recovered/Resolved]
  - Depressed mood [Recovered/Resolved]
  - Depression [Unknown]
  - Inappropriate schedule of product administration [Unknown]
  - Depressed mood [Recovered/Resolved]
  - Asthenia [Recovered/Resolved]
  - Product dose omission issue [Recovered/Resolved]
  - Nausea [Unknown]
  - Neuropathy peripheral [Unknown]
